FAERS Safety Report 21298325 (Version 1)
Quarter: 2022Q3

REPORT INFORMATION
  Report Type: Report from Study
  Country: IT (occurrence: IT)
  Receive Date: 20220906
  Receipt Date: 20220906
  Transmission Date: 20221026
  Serious: Yes (Hospitalization, Other)
  Sender: FDA-Public Use
  Company Number: None

PATIENT
  Age: 24 Year
  Sex: Female

DRUGS (5)
  1. QUETIAPINE [Suspect]
     Active Substance: QUETIAPINE
     Indication: Product used for unknown indication
     Dosage: 400 MG 3 TABLETS HOURS 20
     Route: 048
     Dates: start: 20220505
  2. DULOXETINE [Suspect]
     Active Substance: DULOXETINE
     Indication: Product used for unknown indication
     Dosage: 60 MG 2 TABLETS HOURS 9
     Route: 048
     Dates: start: 20220505
  3. LITHIUM SULFATE [Suspect]
     Active Substance: LITHIUM SULFATE
     Indication: Product used for unknown indication
     Dosage: 83 MG 2 TABLETS HOURS 20
     Route: 048
     Dates: start: 20220505
  4. FLURAZEPAM HYDROCHLORIDE [Suspect]
     Active Substance: FLURAZEPAM HYDROCHLORIDE
     Indication: Product used for unknown indication
     Dosage: 30 MG 3 TABLETS HOURS 20
     Route: 048
     Dates: start: 20220505
  5. VALIUM [Suspect]
     Active Substance: DIAZEPAM
     Indication: Product used for unknown indication
     Dosage: 60 DROPS AT 13 + 30 DROPS AT 20
     Route: 048

REACTIONS (6)
  - Nausea [Unknown]
  - Headache [Unknown]
  - Dyspnoea [Unknown]
  - Vertigo [Unknown]
  - Vision blurred [Unknown]
  - Drug abuse [Unknown]

NARRATIVE: CASE EVENT DATE: 20220505
